FAERS Safety Report 5135423-9 (Version None)
Quarter: 2006Q4

REPORT INFORMATION
  Report Type: 
  Country: None (occurrence: None)
  Receive Date: 20061026
  Receipt Date: 20060919
  Transmission Date: 20070319
  Serious: Yes (Hospitalization)
  Sender: FDA-Public Use
  Company Number: JP-JPN-A200603741

PATIENT
  Age: 84 Year
  Sex: Male
  Weight: 57 kg

DRUGS (7)
  1. VALTREX [Suspect]
     Indication: HERPES ZOSTER
     Dosage: 1000MG THREE TIMES PER DAY
     Route: 048
     Dates: start: 20060914, end: 20060915
  2. ALFAROL [Concomitant]
     Indication: HYPERPARATHYROIDISM SECONDARY
     Dosage: 2.5MG PER DAY
     Route: 048
     Dates: start: 20060916
  3. EPOGEN [Concomitant]
     Dosage: 9IU3 PER DAY
     Route: 042
  4. ASPIRIN [Concomitant]
     Dosage: 100MG PER DAY
     Route: 048
     Dates: start: 20060916
  5. AVISHOT [Concomitant]
     Indication: BENIGN PROSTATIC HYPERPLASIA
     Dosage: 25MG PER DAY
     Route: 048
     Dates: start: 20060916
  6. GASTER D [Concomitant]
     Dosage: 10MG PER DAY
     Route: 048
     Dates: start: 20060916
  7. CALTAN [Concomitant]
     Indication: HYPERPARATHYROIDISM SECONDARY
     Dosage: 2000MG PER DAY
     Route: 048
     Dates: start: 20060916

REACTIONS (9)
  - ABASIA [None]
  - ABNORMAL BEHAVIOUR [None]
  - BALANCE DISORDER [None]
  - DEPRESSED LEVEL OF CONSCIOUSNESS [None]
  - DYSARTHRIA [None]
  - MALAISE [None]
  - MUSCLE TWITCHING [None]
  - NERVOUS SYSTEM DISORDER [None]
  - OVERDOSE [None]
